FAERS Safety Report 5168728-6 (Version None)
Quarter: 2006Q4

REPORT INFORMATION
  Report Type: 
  Country: None (occurrence: None)
  Receive Date: 20061211
  Receipt Date: 20061130
  Transmission Date: 20070319
  Serious: Yes (Hospitalization)
  Sender: FDA-Public Use
  Company Number: US-JNJFOC-20060705609

PATIENT
  Sex: Male

DRUGS (1)
  1. REMICADE [Suspect]
     Indication: RHEUMATOID ARTHRITIS
     Route: 042

REACTIONS (5)
  - ESCHERICHIA URINARY TRACT INFECTION [None]
  - KIDNEY INFECTION [None]
  - LUNG INFECTION [None]
  - SEPSIS [None]
  - SHOULDER ARTHROPLASTY [None]
